FAERS Safety Report 13981668 (Version 1)
Quarter: 2017Q3

REPORT INFORMATION
  Report Type: Spontaneous
  Country: US (occurrence: US)
  Receive Date: 20170918
  Receipt Date: 20170918
  Transmission Date: 20171128
  Serious: No
  Sender: FDA-Public Use
  Company Number: US-BION-005489

PATIENT
  Age: 46 Year
  Sex: Female
  Weight: 61.24 kg

DRUGS (1)
  1. CETIRIZINE/CETIRIZINE HYDROCHLORIDE [Suspect]
     Active Substance: CETIRIZINE HYDROCHLORIDE
     Indication: UPPER-AIRWAY COUGH SYNDROME
     Dosage: 1 DF QD
     Route: 048
     Dates: start: 20160909

REACTIONS (1)
  - Somnolence [Recovered/Resolved]

NARRATIVE: CASE EVENT DATE: 20160909
